FAERS Safety Report 9671243 (Version 2)
Quarter: 2013Q4

REPORT INFORMATION
  Report Type: Spontaneous
  Country: JP (occurrence: JP)
  Receive Date: 20131106
  Receipt Date: 20131203
  Transmission Date: 20140711
  Serious: Yes (Other)
  Sender: FDA-Public Use
  Company Number: JP-CELGENEUS-087-21880-13105176

PATIENT
  Age: 76 Year
  Sex: Male

DRUGS (4)
  1. REVLIMID [Suspect]
     Indication: PLASMA CELL MYELOMA
     Dosage: 25 MILLIGRAM
     Route: 048
  2. REVLIMID [Suspect]
     Dosage: 20 MILLIGRAM
     Route: 048
  3. LENADEX [Suspect]
     Indication: PLASMA CELL MYELOMA
     Route: 065
  4. LENADEX [Suspect]
     Route: 065

REACTIONS (2)
  - Cytokine release syndrome [Recovered/Resolved]
  - Pneumonia [Unknown]
